FAERS Safety Report 23139751 (Version 1)
Quarter: 2023Q4

REPORT INFORMATION
  Report Type: Report from Study
  Country: GB (occurrence: GB)
  Receive Date: 20231102
  Receipt Date: 20231102
  Transmission Date: 20240110
  Serious: Yes (Other)
  Sender: FDA-Public Use
  Company Number: GB-TAKEDA-2023TUS057593

PATIENT
  Sex: Female

DRUGS (2)
  1. VEDOLIZUMAB [Suspect]
     Active Substance: VEDOLIZUMAB
     Indication: Colitis ulcerative
     Dosage: UNK
     Route: 042
     Dates: start: 20230425
  2. VEDOLIZUMAB [Suspect]
     Active Substance: VEDOLIZUMAB
     Indication: Colitis ulcerative
     Dosage: 108 MILLIGRAM, Q2WEEKS
     Route: 058
     Dates: start: 20230606

REACTIONS (11)
  - Colitis ulcerative [Unknown]
  - Injection site erythema [Recovered/Resolved]
  - Injection site urticaria [Unknown]
  - Injection site pruritus [Recovered/Resolved]
  - Nausea [Unknown]
  - Weight decreased [Unknown]
  - Defaecation urgency [Unknown]
  - Diarrhoea [Unknown]
  - Abdominal pain [Unknown]
  - Constipation [Unknown]
  - Fatigue [Unknown]
